FAERS Safety Report 19482079 (Version 5)
Quarter: 2021Q4

REPORT INFORMATION
  Report Type: Report from Study
  Country: US (occurrence: US)
  Receive Date: 20210701
  Receipt Date: 20211005
  Transmission Date: 20220303
  Serious: No
  Sender: FDA-Public Use
  Company Number: NVSC2021US142967

PATIENT
  Sex: Female

DRUGS (3)
  1. KISQALI [Suspect]
     Active Substance: RIBOCICLIB
     Indication: Product used for unknown indication
     Dosage: 3 DF, QD
     Route: 065
  2. KISQALI [Suspect]
     Active Substance: RIBOCICLIB
     Dosage: 2 DF, QD
     Route: 048
  3. KISQALI [Suspect]
     Active Substance: RIBOCICLIB
     Dosage: UNK
     Route: 048

REACTIONS (10)
  - Abdominal discomfort [Recovered/Resolved]
  - Skin haemorrhage [Unknown]
  - Paraesthesia [Unknown]
  - Pruritus [Unknown]
  - Rash [Unknown]
  - Dizziness [Unknown]
  - Nausea [Unknown]
  - Alopecia [Unknown]
  - Pain in extremity [Unknown]
  - Vomiting [Unknown]
